FAERS Safety Report 9442013 (Version 2)
Quarter: 2013Q3

REPORT INFORMATION
  Report Type: Spontaneous
  Country: BR (occurrence: BR)
  Receive Date: 20130806
  Receipt Date: 20130910
  Transmission Date: 20140515
  Serious: Yes (Life-Threatening, Hospitalization)
  Sender: FDA-Public Use
  Company Number: BR-AMGEN-BRASP2013046675

PATIENT
  Age: 54 Year
  Sex: Female
  Weight: 77 kg

DRUGS (16)
  1. ENBREL [Suspect]
     Indication: RHEUMATOID ARTHRITIS
     Dosage: 50 MG, ONCE WEEKLY
     Route: 058
     Dates: start: 201306, end: 201306
  2. ENBREL [Suspect]
     Dosage: UNK
     Route: 065
  3. DICLOFENAC [Concomitant]
     Indication: ANTIINFLAMMATORY THERAPY
     Dosage: UNK
  4. METHOTREXATE [Concomitant]
     Dosage: 2.5MG, AT 8 CAPSULES OF TABLETS (NOT CLEARLY SPECIFIED), A ^DAY/WEEK^
  5. OMEPRAZOLE [Concomitant]
     Indication: GASTRIC DISORDER
     Dosage: 20 MG, UNK
  6. FOLIC ACID [Concomitant]
     Dosage: 5 MG, UNK
  7. TIBOLONE [Concomitant]
     Indication: HORMONE THERAPY
     Dosage: UNK
  8. INCONTINOL [Concomitant]
     Indication: URINARY INCONTINENCE
     Dosage: UNK
  9. CITALOPRAM [Concomitant]
     Indication: ANTIDEPRESSANT THERAPY
     Dosage: UNK
  10. PREDNISONE [Concomitant]
     Dosage: 20 MG, UNK
  11. PREDNISONE [Concomitant]
     Dosage: 10 MG, 1X/DAY
  12. LOSARTAN [Concomitant]
     Indication: BLOOD PRESSURE INCREASED
     Dosage: 50 MG, 1X/DAY
  13. TRILEPTAL [Concomitant]
     Dosage: 600 MG, UNK
  14. HYDROCHLOROTHIAZIDE [Concomitant]
     Dosage: 300 MG, UNK
  15. NAPROXEN [Concomitant]
     Dosage: 500 MG, 2X/DAY
  16. CEFALOTIN [Concomitant]
     Dosage: 20 MG, 1X/DAY

REACTIONS (10)
  - Cough [Unknown]
  - Vomiting [Not Recovered/Not Resolved]
  - Nausea [Not Recovered/Not Resolved]
  - Eating disorder [Not Recovered/Not Resolved]
  - Pyrexia [Not Recovered/Not Resolved]
  - Dizziness [Unknown]
  - Chest discomfort [Unknown]
  - Asthenia [Not Recovered/Not Resolved]
  - Bronchitis [Not Recovered/Not Resolved]
  - Pneumonia [Recovered/Resolved]
